FAERS Safety Report 9304435 (Version 1)
Quarter: 2013Q2

REPORT INFORMATION
  Report Type: Spontaneous
  Country: ES (occurrence: ES)
  Receive Date: 20130522
  Receipt Date: 20130522
  Transmission Date: 20140414
  Serious: Yes (Other)
  Sender: FDA-Public Use
  Company Number: ES-ELI_LILLY_AND_COMPANY-ES201305003984

PATIENT
  Age: 64 Year
  Sex: Male

DRUGS (1)
  1. CYMBALTA [Suspect]
     Dosage: UNK, UNKNOWN
     Route: 065
     Dates: start: 201205

REACTIONS (3)
  - Respiratory depression [Unknown]
  - Loss of consciousness [Unknown]
  - Syncope [Unknown]
